FAERS Safety Report 7997801-X (Version None)
Quarter: 2011Q4

REPORT INFORMATION
  Report Type: 
  Country: None (occurrence: None)
  Receive Date: 20111221
  Receipt Date: 20111212
  Transmission Date: 20120403
  Serious: Yes (Hospitalization, Other)
  Sender: FDA-Public Use
  Company Number: PHFR2011GB06215

PATIENT
  Age: 50 Year
  Sex: Male

DRUGS (2)
  1. RITALIN [Suspect]
     Dosage: UNK UKN, UNK
     Route: 048
  2. ESCITALOPRAM [Suspect]
     Indication: DEPRESSION
     Dosage: 20 MG, PER DAY
     Route: 048

REACTIONS (1)
  - ADRENOMEGALY [None]
